FAERS Safety Report 12360631 (Version 1)
Quarter: 2016Q2

REPORT INFORMATION
  Report Type: Report from Study
  Country: CA (occurrence: CA)
  Receive Date: 20160512
  Receipt Date: 20160512
  Transmission Date: 20160815
  Serious: Yes (Other)
  Sender: FDA-Public Use
  Company Number: CA-AMGEN-CANSL2016058643

PATIENT
  Age: 72 Year
  Sex: Female

DRUGS (9)
  1. APO-PROCHLORAZINE [Concomitant]
     Dosage: 10 MG, UNK
     Route: 065
  2. APO-NAPROXEN [Concomitant]
     Active Substance: NAPROXEN
     Dosage: 375 MG, UNK
     Route: 065
  3. COVERSYL PLUS [Concomitant]
     Active Substance: INDAPAMIDE\PERINDOPRIL
     Dosage: 2.5 MG (8 MG), UNK
     Route: 065
  4. PMS-DEXAMETHASONE [Concomitant]
     Active Substance: DEXAMETHASONE
     Dosage: 4 MG, UNK
     Route: 065
  5. EMEND [Concomitant]
     Active Substance: APREPITANT
     Dosage: 80 MUG, UNK
     Route: 065
  6. PMS-ONDANSETRON [Concomitant]
     Dosage: 8 MG, UNK
     Route: 065
  7. PANTOPRAZOLE SODIUM. [Concomitant]
     Active Substance: PANTOPRAZOLE SODIUM
     Dosage: 40 MG, UNK
     Route: 065
  8. PROLIA [Suspect]
     Active Substance: DENOSUMAB
     Indication: PRODUCT USED FOR UNKNOWN INDICATION
     Dosage: 60 MG/ML, UNK
     Route: 065
     Dates: start: 20120206
  9. NEUPOGEN [Concomitant]
     Active Substance: FILGRASTIM
     Indication: PRODUCT USED FOR UNKNOWN INDICATION
     Dosage: 300 MUG, UNK
     Route: 065

REACTIONS (1)
  - Breast cancer female [Unknown]

NARRATIVE: CASE EVENT DATE: 201602
